FAERS Safety Report 5932748-1 (Version None)
Quarter: 2008Q4

REPORT INFORMATION
  Report Type: 
  Country: None (occurrence: None)
  Receive Date: 20081027
  Receipt Date: 20081027
  Transmission Date: 20090506
  Serious: Yes (Hospitalization)
  Sender: FDA-Public Use
  Company Number: None

PATIENT
  Sex: Male
  Weight: 60.782 kg

DRUGS (16)
  1. CAPECITABINE 500MG + 150MG TABS/ ROCHE [Suspect]
     Indication: PANCREATIC CARCINOMA
     Dosage: 1250MG/M2 DAYS 1-7 PO
     Route: 048
     Dates: start: 20080716, end: 20080805
  2. GEMCITABINE [Suspect]
     Indication: PANCREATIC CARCINOMA
     Dosage: 1000MG/M2 Q 2 WEEKS IV
     Route: 042
     Dates: start: 20080716
  3. GEMCITABINE [Suspect]
     Indication: PANCREATIC CARCINOMA
     Dosage: 1000MG/M2 Q 2 WEEKS IV
     Route: 042
     Dates: start: 20080730
  4. ALTACE [Concomitant]
  5. METOPROLOL TARTRATE [Concomitant]
  6. ALLOPURINAOL [Concomitant]
  7. LIPITOR [Concomitant]
  8. NIAASPAN [Concomitant]
  9. COMPAZINE [Concomitant]
  10. ATIVAN [Concomitant]
  11. FENTANYL [Concomitant]
  12. MEGACE [Concomitant]
  13. MIRALAX [Concomitant]
  14. ASPIRIN [Concomitant]
  15. WHEY PROTEIN SUPPLEMENT [Concomitant]
  16. PANCREATIC ENZYMES [Concomitant]

REACTIONS (4)
  - FALL [None]
  - HYPERKALAEMIA [None]
  - MUSCULOSKELETAL CHEST PAIN [None]
  - RENAL FAILURE [None]
